FAERS Safety Report 7919823-7 (Version None)
Quarter: 2011Q4

REPORT INFORMATION
  Report Type: 
  Country: None (occurrence: None)
  Receive Date: 20111117
  Receipt Date: 20111117
  Transmission Date: 20120403
  Serious: Yes (Life-Threatening, Hospitalization)
  Sender: FDA-Public Use
  Company Number: None

PATIENT
  Age: 82 Year
  Sex: Male

DRUGS (1)
  1. OMEPRAZOLE [Suspect]
     Dates: start: 20110406, end: 20110414

REACTIONS (4)
  - VENTRICULAR TACHYCARDIA [None]
  - METASTASES TO LUNG [None]
  - HEPATIC NEOPLASM MALIGNANT [None]
  - HYPOMAGNESAEMIA [None]
